FAERS Safety Report 24600535 (Version 1)
Quarter: 2024Q4

REPORT INFORMATION
  Report Type: Report from Study
  Country: US (occurrence: US)
  Receive Date: 20241110
  Receipt Date: 20241110
  Transmission Date: 20250115
  Serious: Yes (Other)
  Sender: JOHNSON AND JOHNSON
  Company Number: US-JNJFOC-20241108790

PATIENT
  Age: 35 Year
  Sex: Female

DRUGS (2)
  1. SPRAVATO [Suspect]
     Active Substance: ESKETAMINE
     Indication: Depression
     Dosage: ^56 MG, 1 TOTAL DOSE^
     Dates: start: 20240805, end: 20240805
  2. SPRAVATO [Suspect]
     Active Substance: ESKETAMINE
     Dosage: ^84 MG, 4 TOTAL DOSES^
     Dates: start: 20240807, end: 20240822

REACTIONS (1)
  - Exposure during pregnancy [Unknown]

NARRATIVE: CASE EVENT DATE: 20240101
